FAERS Safety Report 20390310 (Version 1)
Quarter: 2022Q1

REPORT INFORMATION
  Report Type: Report from Study
  Country: KR (occurrence: KR)
  Receive Date: 20220128
  Receipt Date: 20220128
  Transmission Date: 20220424
  Serious: Yes (Other)
  Sender: FDA-Public Use
  Company Number: KR-TAKEDA-2022TUS004342

PATIENT
  Sex: Female
  Weight: 46.2 kg

DRUGS (53)
  1. IXAZOMIB [Suspect]
     Active Substance: IXAZOMIB
     Indication: Plasma cell myeloma
     Dosage: 4 MILLIGRAM, QD
     Route: 065
     Dates: start: 20211217
  2. DEXAMETHASONE [Suspect]
     Active Substance: DEXAMETHASONE
     Indication: Plasma cell myeloma
     Dosage: 20 MILLIGRAM, 2/WEEK
     Route: 065
     Dates: start: 20211217
  3. DEXAMETHASONE [Suspect]
     Active Substance: DEXAMETHASONE
     Dosage: 30 MILLIGRAM, BID
     Dates: start: 20211225
  4. DEXAMETHASONE [Suspect]
     Active Substance: DEXAMETHASONE
     Dosage: 10 MILLIGRAM, QD
     Route: 065
     Dates: start: 20211226
  5. DEXAMETHASONE [Suspect]
     Active Substance: DEXAMETHASONE
     Dosage: 20 MILLIGRAM, BID
     Route: 065
     Dates: start: 20220101
  6. DEXAMETHASONE [Suspect]
     Active Substance: DEXAMETHASONE
     Dosage: 10 MILLIGRAM, QD
     Route: 065
     Dates: start: 20220102
  7. DEXAMETHASONE [Suspect]
     Active Substance: DEXAMETHASONE
     Dosage: 20 MILLIGRAM, BID
     Route: 065
     Dates: start: 20220108
  8. LENALIDOMIDE [Suspect]
     Active Substance: LENALIDOMIDE
     Indication: Plasma cell myeloma
     Dosage: 25 MILLIGRAM, QD
     Route: 065
     Dates: start: 20211217, end: 20220106
  9. COMBIFLEX PERI [Concomitant]
     Indication: Prophylaxis
     Dosage: 1100 MILLILITER
     Route: 042
     Dates: start: 20211224, end: 20211224
  10. ASPIRIN [Concomitant]
     Active Substance: ASPIRIN
     Indication: Hyperlipidaemia
     Dosage: 100 MILLIGRAM
     Route: 048
     Dates: start: 20220103
  11. Vacrax [Concomitant]
     Indication: Infection prophylaxis
     Dosage: 400 MILLIGRAM, BID
     Route: 048
     Dates: start: 20211217
  12. TOPANUSOL [Concomitant]
     Indication: Prophylaxis
     Dosage: 500 MILLILITER, QD
     Route: 042
     Dates: start: 20211224, end: 20211224
  13. AMLODIPINE OROTATE [Concomitant]
     Active Substance: AMLODIPINE OROTATE
     Indication: Hypertension
     Dosage: 5 MILLIGRAM, QD
     Route: 048
  14. LIPITOR [Concomitant]
     Active Substance: ATORVASTATIN CALCIUM
     Indication: Hyperlipidaemia
     Dosage: 20 MILLIGRAM, QD
     Route: 048
  15. Mypol [Concomitant]
     Indication: Pain prophylaxis
     Dosage: UNK
     Route: 048
     Dates: end: 20211223
  16. Mypol [Concomitant]
     Indication: Prophylaxis
     Dosage: UNK
     Route: 048
     Dates: start: 20211224, end: 20211224
  17. Mypol [Concomitant]
     Dosage: UNK
     Route: 048
     Dates: start: 20211225, end: 20211227
  18. Mypol [Concomitant]
     Dosage: UNK
     Route: 048
     Dates: start: 20211228, end: 20211228
  19. PHOSTEN [Concomitant]
     Indication: Prophylaxis
     Dosage: 20 MILLILITER
     Route: 042
     Dates: start: 20211228, end: 20211228
  20. BARACLE [Concomitant]
     Indication: Liver disorder
     Dosage: 0.5 MILLIGRAM
     Route: 048
     Dates: start: 20211227
  21. Glimel [Concomitant]
     Indication: Diabetes mellitus
     Dosage: 2 MILLIGRAM, BID
     Route: 048
  22. HUMULIN R [Concomitant]
     Active Substance: INSULIN HUMAN
     Indication: Diabetes mellitus
     Dosage: UNK UNK, QD
     Route: 042
     Dates: start: 20211227, end: 20211227
  23. HUMULIN R [Concomitant]
     Active Substance: INSULIN HUMAN
     Dosage: UNK UNK, QD
     Route: 042
     Dates: start: 20211228, end: 20211228
  24. HUMULIN R [Concomitant]
     Active Substance: INSULIN HUMAN
     Dosage: UNK UNK, QD
     Route: 042
     Dates: start: 20220101, end: 20220101
  25. HUMULIN R [Concomitant]
     Active Substance: INSULIN HUMAN
     Dosage: UNK UNK, QD
     Route: 042
     Dates: start: 20220103, end: 20220104
  26. LAFUTIDINE [Concomitant]
     Active Substance: LAFUTIDINE
     Indication: Anastomotic ulcer
     Dosage: 10 MILLIGRAM
     Route: 048
     Dates: start: 20211217, end: 20211225
  27. LANSOPRAZOLE [Concomitant]
     Active Substance: LANSOPRAZOLE
     Indication: Anastomotic ulcer
     Dosage: 15 MILLIGRAM, QD
     Route: 048
     Dates: start: 20211225, end: 20220114
  28. LEVOFLOXACIN [Concomitant]
     Active Substance: LEVOFLOXACIN
     Indication: Infection prophylaxis
     Dosage: 500 MILLIGRAM, QD
     Route: 048
     Dates: start: 20211217, end: 20220113
  29. MAGNESIUM HYDROXIDE [Concomitant]
     Active Substance: MAGNESIUM HYDROXIDE
     Indication: Constipation
     Dosage: 500 MILLIGRAM, QD
     Route: 048
     Dates: start: 20211217, end: 20220113
  30. MAGNESIUM HYDROXIDE [Concomitant]
     Active Substance: MAGNESIUM HYDROXIDE
     Dosage: 500 MILLIGRAM, QD
     Route: 048
     Dates: start: 20211224, end: 20211224
  31. MAGNESIUM HYDROXIDE [Concomitant]
     Active Substance: MAGNESIUM HYDROXIDE
     Dosage: 500 MILLIGRAM, QD
     Route: 048
     Dates: start: 20211225, end: 20211228
  32. MAGNESIUM HYDROXIDE [Concomitant]
     Active Substance: MAGNESIUM HYDROXIDE
     Dosage: 500 MILLIGRAM, QD
     Route: 048
     Dates: start: 20220105, end: 20220112
  33. LINAGLIPTIN [Concomitant]
     Active Substance: LINAGLIPTIN
     Indication: Diabetes mellitus
     Dosage: UNK
     Route: 048
     Dates: end: 20211220
  34. LINAGLIPTIN [Concomitant]
     Active Substance: LINAGLIPTIN
     Dosage: UNK
     Route: 048
     Dates: start: 20211217, end: 20220113
  35. LINAGLIPTIN [Concomitant]
     Active Substance: LINAGLIPTIN
     Dosage: UNK
     Route: 048
     Dates: start: 20211224, end: 20211224
  36. LINAGLIPTIN [Concomitant]
     Active Substance: LINAGLIPTIN
     Dosage: UNK
     Route: 048
     Dates: start: 20211225
  37. MECKOOL [Concomitant]
     Indication: Vomiting
     Dosage: 10 MILLIGRAM, QD
     Route: 042
     Dates: start: 20211224, end: 20211225
  38. METOCLOPRAMIDE HYDROCHLORIDE [Concomitant]
     Active Substance: METOCLOPRAMIDE HYDROCHLORIDE
     Indication: Vomiting
     Dosage: UNK
     Route: 048
     Dates: start: 20220105, end: 20220108
  39. MORPHINE [Concomitant]
     Active Substance: MORPHINE
     Indication: Pain prophylaxis
     Dosage: 5 MILLIGRAM, QD
     Route: 042
     Dates: start: 20211224, end: 20211224
  40. OXYCODONE HYDROCHLORIDE [Concomitant]
     Active Substance: OXYCODONE HYDROCHLORIDE
     Indication: Pain prophylaxis
     Dosage: 5 MILLIGRAM
     Route: 048
     Dates: end: 20211220
  41. OXYCODONE HYDROCHLORIDE [Concomitant]
     Active Substance: OXYCODONE HYDROCHLORIDE
     Dosage: 5 MILLIGRAM
     Route: 048
     Dates: start: 20211217, end: 20220113
  42. OXYCODONE HYDROCHLORIDE [Concomitant]
     Active Substance: OXYCODONE HYDROCHLORIDE
     Dosage: 5 MILLIGRAM
     Route: 048
     Dates: start: 20211224, end: 20211224
  43. OXYCODONE HYDROCHLORIDE [Concomitant]
     Active Substance: OXYCODONE HYDROCHLORIDE
     Dosage: 5 MILLIGRAM
     Route: 048
     Dates: start: 20211225, end: 20220114
  44. CALCIUM POLYCARBOPHIL [Concomitant]
     Active Substance: CALCIUM POLYCARBOPHIL
     Indication: Constipation
     Dosage: 625 MILLIGRAM, QD
     Route: 048
     Dates: end: 20211220
  45. CALCIUM POLYCARBOPHIL [Concomitant]
     Active Substance: CALCIUM POLYCARBOPHIL
     Dosage: 625 MILLIGRAM, QD
     Route: 048
     Dates: start: 20211217, end: 20220113
  46. CALCIUM POLYCARBOPHIL [Concomitant]
     Active Substance: CALCIUM POLYCARBOPHIL
     Dosage: 625 MILLIGRAM, QD
     Route: 048
     Dates: start: 20211224, end: 20211228
  47. CALCIUM POLYCARBOPHIL [Concomitant]
     Active Substance: CALCIUM POLYCARBOPHIL
     Dosage: 625 MILLIGRAM, QD
     Route: 048
     Dates: start: 20220103, end: 20220103
  48. CALCIUM POLYCARBOPHIL [Concomitant]
     Active Substance: CALCIUM POLYCARBOPHIL
     Dosage: 625 MILLIGRAM, QD
     Route: 048
     Dates: start: 20220104, end: 20220112
  49. MOSAPRIDE CITRATE [Concomitant]
     Active Substance: MOSAPRIDE CITRATE
     Indication: Vomiting
     Dosage: 5 MILLIGRAM, BID
     Route: 048
     Dates: start: 20211225, end: 20211225
  50. MOSAPRIDE CITRATE [Concomitant]
     Active Substance: MOSAPRIDE CITRATE
     Dosage: 5 MILLIGRAM, BID
     Route: 048
     Dates: start: 20211226, end: 20220114
  51. SULFAMETHOXAZOLE\TRIMETHOPRIM [Concomitant]
     Active Substance: SULFAMETHOXAZOLE\TRIMETHOPRIM
     Indication: Infection prophylaxis
     Dosage: 400 MILLIGRAM
     Route: 048
     Dates: start: 20211217, end: 20220113
  52. URSODIOL [Concomitant]
     Active Substance: URSODIOL
     Indication: Liver disorder
     Dosage: 100 MILLIGRAM
     Route: 048
     Dates: start: 20211227, end: 20220113
  53. ZOLPIDEM TARTRATE [Concomitant]
     Active Substance: ZOLPIDEM TARTRATE
     Indication: Sleep disorder
     Dosage: 6.25 MILLIGRAM
     Route: 048
     Dates: end: 20220114

REACTIONS (1)
  - Gastric ulcer perforation [Recovering/Resolving]

NARRATIVE: CASE EVENT DATE: 20220114
